FAERS Safety Report 5347428-3 (Version None)
Quarter: 2007Q2

REPORT INFORMATION
  Report Type: 
  Country: None (occurrence: None)
  Receive Date: 20070507
  Receipt Date: 20070215
  Transmission Date: 20071010
  Serious: Yes (Other)
  Sender: FDA-Public Use
  Company Number: 2500

PATIENT
  Age: 54 Year
  Sex: Male

DRUGS (3)
  1. AVINZA [Suspect]
  2. KADIAN [Suspect]
  3. MORPHINE SULFATE [Suspect]

REACTIONS (1)
  - INTENTIONAL OVERDOSE [None]
